FAERS Safety Report 16481664 (Version 1)
Quarter: 2019Q2

REPORT INFORMATION
  Report Type: Spontaneous
  Country: US (occurrence: US)
  Receive Date: 20190627
  Receipt Date: 20190627
  Transmission Date: 20190711
  Serious: No
  Sender: FDA-Public Use
  Company Number: US-GLAXOSMITHKLINE-US2019114832

PATIENT
  Age: 87 Year
  Sex: Male

DRUGS (2)
  1. ABREVA [Suspect]
     Active Substance: DOCOSANOL
     Indication: ORAL HERPES
     Dosage: UNK (STOP USE JUST A COUPLE OF DAYS AGO)
     Dates: start: 20190618
  2. ABREVA [Suspect]
     Active Substance: DOCOSANOL
     Dosage: UNK (STOP USE JUST A COUPLE OF DAYS AGO)UNK
     Dates: start: 20190618

REACTIONS (4)
  - Drug ineffective [Unknown]
  - Application site exfoliation [Unknown]
  - Application site haemorrhage [Unknown]
  - Product complaint [Unknown]
